FAERS Safety Report 5163246-3 (Version None)
Quarter: 2006Q4

REPORT INFORMATION
  Report Type: 
  Country: None (occurrence: None)
  Receive Date: 20061121
  Receipt Date: 20061114
  Transmission Date: 20070319
  Serious: Yes (Hospitalization)
  Sender: FDA-Public Use
  Company Number: 2006BI015434

PATIENT
  Age: 34 Year
  Sex: Female
  Weight: 57.6068 kg

DRUGS (1)
  1. AVONEX [Suspect]
     Indication: MULTIPLE SCLEROSIS
     Dosage: 30 UG QW IM
     Route: 030
     Dates: start: 20000101, end: 20020301

REACTIONS (10)
  - ARRESTED LABOUR [None]
  - CAESAREAN SECTION [None]
  - CHILLS [None]
  - DRUG EXPOSURE BEFORE PREGNANCY [None]
  - INFLUENZA LIKE ILLNESS [None]
  - INJECTION SITE IRRITATION [None]
  - PAIN [None]
  - POST PROCEDURAL COMPLICATION [None]
  - PYREXIA [None]
  - TREMOR [None]
